FAERS Safety Report 4978912-X (Version None)
Quarter: 2006Q2

REPORT INFORMATION
  Report Type: 
  Country: None (occurrence: None)
  Receive Date: 20060417
  Receipt Date: 20060404
  Transmission Date: 20061013
  Serious: Yes (Death, Hospitalization)
  Sender: FDA-Public Use
  Company Number: 2006020644

PATIENT
  Age: 70 Year
  Sex: Male
  Weight: 77 kg

DRUGS (8)
  1. SOLU-MEDROL [Suspect]
     Indication: DRUG ERUPTION
     Dosage: 125 MG, INTRAVENOUS
     Route: 042
     Dates: start: 20060105
  2. VFEND [Suspect]
     Indication: PNEUMONIA FUNGAL
     Dosage: 400 MG (200 MG, 2 IN  1 D), INTRAVENOUS
     Route: 042
     Dates: start: 20051221, end: 20051226
  3. VFEND [Suspect]
     Dosage: 400 MG (200 MG,2 IN 1), ORAL
     Route: 048
     Dates: start: 20051227, end: 20060103
  4. NORVASC [Concomitant]
  5. ENALAPRIL MALEATE [Concomitant]
  6. PLETAL [Concomitant]
  7. LOXONIN (LOXOPROFEN SODIUM) [Concomitant]
  8. RED BLOOD CELLS [Concomitant]

REACTIONS (6)
  - DRUG ERUPTION [None]
  - GENERALISED ERYTHEMA [None]
  - PNEUMONIA [None]
  - PYREXIA [None]
  - SKIN TEST POSITIVE [None]
  - THERAPY NON-RESPONDER [None]
